FAERS Safety Report 8364256-5 (Version None)
Quarter: 2012Q2

REPORT INFORMATION
  Report Type: 
  Country: None (occurrence: None)
  Receive Date: 20120514
  Receipt Date: 20120510
  Transmission Date: 20120825
  Serious: Yes (Death, Life-Threatening, Hospitalization)
  Sender: FDA-Public Use
  Company Number: SP05592

PATIENT
  Age: 72 Year
  Sex: Female
  Weight: 68.4932 kg

DRUGS (7)
  1. BENADRYL [Concomitant]
  2. LOTREL [Concomitant]
  3. TOPROL-XL [Concomitant]
  4. ATIVAN [Concomitant]
  5. ANUSOL (SUPPOSITORY) [Concomitant]
  6. MOVIPREP [Suspect]
     Indication: BOWEL PREPARATION
     Dosage: (2 LIT),ORAL
     Route: 048
     Dates: start: 20120305, end: 20120305
  7. MILK OF MAGNESIA TAB [Concomitant]

REACTIONS (11)
  - GASTRIC DILATATION [None]
  - DISSEMINATED INTRAVASCULAR COAGULATION [None]
  - ABDOMINAL COMPARTMENT SYNDROME [None]
  - INTERNATIONAL NORMALISED RATIO INCREASED [None]
  - ABDOMINAL DISTENSION [None]
  - LARGE INTESTINE PERFORATION [None]
  - ALANINE AMINOTRANSFERASE INCREASED [None]
  - BLOOD CREATINE PHOSPHOKINASE INCREASED [None]
  - PLATELET COUNT DECREASED [None]
  - HAEMOGLOBIN DECREASED [None]
  - ASPARTATE AMINOTRANSFERASE INCREASED [None]
